FAERS Safety Report 5169381-8 (Version None)
Quarter: 2006Q4

REPORT INFORMATION
  Report Type: 
  Country: None (occurrence: None)
  Receive Date: 20061201
  Receipt Date: 20061117
  Transmission Date: 20070319
  Serious: Yes (Hospitalization)
  Sender: FDA-Public Use
  Company Number: US-2006-018682

PATIENT
  Age: 49 Year
  Sex: Female

DRUGS (5)
  1. BETASERON [Suspect]
     Indication: RELAPSING-REMITTING MULTIPLE SCLEROSIS
     Dosage: SUBCUTANEOUS
     Route: 058
     Dates: start: 20041231, end: 20060505
  2. BETASERON [Suspect]
     Indication: RELAPSING-REMITTING MULTIPLE SCLEROSIS
     Dosage: SUBCUTANEOUS
     Route: 058
     Dates: start: 20060516
  3. AMBIEN [Concomitant]
  4. ALBUTEROL [Concomitant]
  5. CORTICOSTEROIDS [Concomitant]

REACTIONS (16)
  - AFFECTIVE DISORDER [None]
  - ASTHENIA [None]
  - BACK PAIN [None]
  - BLOOD POTASSIUM DECREASED [None]
  - BRONCHITIS ACUTE [None]
  - BRONCHITIS ACUTE VIRAL [None]
  - CHEST PAIN [None]
  - CHILLS [None]
  - GASTROINTESTINAL DISORDER [None]
  - NASAL CONGESTION [None]
  - NAUSEA [None]
  - PAIN [None]
  - PHARYNGOLARYNGEAL PAIN [None]
  - STATUS ASTHMATICUS [None]
  - TREATMENT NONCOMPLIANCE [None]
  - WHITE BLOOD CELL COUNT INCREASED [None]
